FAERS Safety Report 9304501 (Version 3)
Quarter: 2013Q3

REPORT INFORMATION
  Report Type: Report from Study
  Country: BR (occurrence: BR)
  Receive Date: 20130523
  Receipt Date: 20130917
  Transmission Date: 20140515
  Serious: Yes (Other)
  Sender: FDA-Public Use
  Company Number: BR-AMGEN-BRACT2011061553

PATIENT
  Age: 57 Year
  Sex: Female
  Weight: 48 kg

DRUGS (9)
  1. ETANERCEPT [Suspect]
     Indication: RHEUMATOID ARTHRITIS
     Dosage: 50 MG, QWK
     Route: 058
     Dates: start: 201102, end: 201204
  2. ETANERCEPT [Suspect]
     Dosage: 50 MG, QWK
     Route: 058
     Dates: start: 201202
  3. ETANERCEPT [Suspect]
     Dosage: 50 MG, QWK
     Route: 058
  4. ETANERCEPT [Suspect]
     Dosage: 50 MG, QWK
     Route: 058
  5. ACECLOFENAC [Concomitant]
     Dosage: 10 MG, 2X/DAY
  6. CALCIUM [Concomitant]
     Indication: OSTEOPOROSIS
     Dosage: 600 MG, 1X/DAY
  7. ATENOLOL [Concomitant]
     Indication: CARDIAC DISORDER
     Dosage: ONE TABLET OF 25MG ONCE DAILY
     Dates: start: 2007
  8. METHOTREXATE [Concomitant]
     Indication: ANTIINFLAMMATORY THERAPY
     Dosage: UNK
     Dates: start: 2010
  9. MELOXICAM [Concomitant]
     Indication: ANTIINFLAMMATORY THERAPY
     Dosage: ONE TABLET OF 15MG ONCE DAILY (IF FEELING PAIN)
     Dates: start: 2007

REACTIONS (7)
  - Wrong technique in drug usage process [Unknown]
  - Urinary tract infection [Unknown]
  - Phlebitis [Unknown]
  - Blood pressure fluctuation [Unknown]
  - Feeling hot [Unknown]
  - Erythema [Unknown]
  - Injection site pain [Unknown]
